FAERS Safety Report 8230088-1 (Version None)
Quarter: 2012Q1

REPORT INFORMATION
  Report Type: 
  Country: None (occurrence: None)
  Receive Date: 20120323
  Receipt Date: 20120319
  Transmission Date: 20120608
  Serious: No
  Sender: FDA-Public Use
  Company Number: US-PFIZER INC-2012071441

PATIENT
  Sex: Male

DRUGS (2)
  1. LYRICA [Suspect]
     Dosage: UNK
     Dates: end: 20120318
  2. LYRICA [Suspect]
     Dosage: 75 MG, 2X/DAY
     Dates: end: 20120318

REACTIONS (5)
  - INSOMNIA [None]
  - NAUSEA [None]
  - HYPOAESTHESIA ORAL [None]
  - OROPHARYNGEAL PAIN [None]
  - PARAESTHESIA ORAL [None]
